FAERS Safety Report 10126221 (Version 2)
Quarter: 2015Q1

REPORT INFORMATION
  Report Type: Other
  Country: US (occurrence: US)
  Receive Date: 20140427
  Receipt Date: 20150206
  Transmission Date: 20150720
  Serious: Yes (Hospitalization, Other)
  Sender: FDA-Public Use
  Company Number: US-GSKPPD-2014GSK029633

PATIENT
  Age: 43 Year
  Sex: Male

DRUGS (9)
  1. PLAVIX [Concomitant]
     Active Substance: CLOPIDOGREL BISULFATE
  2. NITRO-DUR [Concomitant]
     Active Substance: NITROGLYCERIN
  3. LASIX [Concomitant]
     Active Substance: FUROSEMIDE
  4. BABY ASPIRIN [Concomitant]
     Active Substance: ASPIRIN
  5. ALDACTONE [Concomitant]
     Active Substance: SPIRONOLACTONE
  6. VASOTEC [Concomitant]
     Active Substance: ENALAPRIL MALEATE
  7. ECOTRIN [Concomitant]
     Active Substance: ASPIRIN
  8. AVANDIA [Suspect]
     Active Substance: ROSIGLITAZONE MALEATE
     Indication: DIABETES MELLITUS
     Dosage: AVANDIA WAS NOT LISTED AMONG THE PATIENTS RECORDS REVIEWED.
     Route: 048
  9. COREG [Concomitant]
     Active Substance: CARVEDILOL

REACTIONS (2)
  - Cerebrovascular accident [Unknown]
  - Acute myocardial infarction [Recovered/Resolved]

NARRATIVE: CASE EVENT DATE: 20070607
